FAERS Safety Report 20549024 (Version 1)
Quarter: 2022Q1

REPORT INFORMATION
  Report Type: Spontaneous
  Country: US (occurrence: US)
  Receive Date: 20220303
  Receipt Date: 20220303
  Transmission Date: 20220424
  Serious: No
  Sender: FDA-Public Use
  Company Number: US-BRAINTREE LABORATORIES, INC.-2021BTE01068

PATIENT
  Age: 65 Year
  Sex: Female
  Weight: 69.853 kg

DRUGS (2)
  1. SUTAB [Suspect]
     Active Substance: MAGNESIUM SULFATE\POTASSIUM CHLORIDE\SODIUM SULFATE
     Indication: Colonoscopy
     Dosage: 2 X 12 TABLETS, 1X
     Route: 048
     Dates: start: 20211201, end: 20211202
  2. VITAMIN D [Concomitant]
     Active Substance: VITAMIN D NOS
     Dosage: OCCASSIONALLY

REACTIONS (3)
  - Drug ineffective [Recovered/Resolved]
  - Constipation [Recovered/Resolved]
  - Mucous stools [Unknown]

NARRATIVE: CASE EVENT DATE: 20211201
